FAERS Safety Report 21911080 (Version 3)
Quarter: 2023Q1

REPORT INFORMATION
  Report Type: Report from Study
  Country: CH (occurrence: CH)
  Receive Date: 20230125
  Receipt Date: 20230203
  Transmission Date: 20230418
  Serious: Yes (Hospitalization)
  Sender: FDA-Public Use
  Company Number: CH-ABBVIE-4269828

PATIENT
  Age: 78 Year
  Sex: Female

DRUGS (6)
  1. CARBIDOPA\LEVODOPA [Suspect]
     Active Substance: CARBIDOPA\LEVODOPA
     Indication: Parkinson^s disease
     Dosage: FREQUENCY TEXT 16H THERAPY?LAST ADMIN DATE 2022
     Route: 050
     Dates: start: 20220221
  2. CARBIDOPA\LEVODOPA [Suspect]
     Active Substance: CARBIDOPA\LEVODOPA
     Dosage: MD: 4.7 ML, CRD: 1.7 ML/H, ED: 0.5 ML?FREQUENCY TEXT: 16H THERAPY
     Route: 050
     Dates: start: 20220913, end: 20230112
  3. CARBIDOPA\LEVODOPA [Suspect]
     Active Substance: CARBIDOPA\LEVODOPA
     Dosage: MD: 4.7 ML, CRD: 2.2 ML/H, ED: 0.5 ML
     Route: 050
     Dates: start: 20230112, end: 20230120
  4. CARBIDOPA\LEVODOPA [Suspect]
     Active Substance: CARBIDOPA\LEVODOPA
     Dosage: MD: 4.7 ML, CRD: 2.,3 ML/H, ED: 0.5 ML
     Route: 050
     Dates: start: 20230120, end: 20230123
  5. CARBIDOPA\LEVODOPA [Suspect]
     Active Substance: CARBIDOPA\LEVODOPA
     Dosage: MD: 4.7 ML, CRD: 2.,2 ML/H, ED: 0.5 ML
     Route: 050
     Dates: start: 20230123
  6. CARBIDOPA\LEVODOPA [Concomitant]
     Active Substance: CARBIDOPA\LEVODOPA
     Indication: Parkinson^s disease
     Dosage: CARBIDOPA/LEVODOPA CR 200/50 SANDOZ (RETARD TABLETS) 1 INTO  50/200 MG BLISTER, ONE SINGLE INTAKE...
     Dates: start: 20220511

REACTIONS (8)
  - Fall [Recovered/Resolved]
  - Taciturnity [Not Recovered/Not Resolved]
  - Injury [Unknown]
  - Depression [Not Recovered/Not Resolved]
  - On and off phenomenon [Unknown]
  - Fatigue [Not Recovered/Not Resolved]
  - Asthenia [Not Recovered/Not Resolved]
  - Device issue [Recovered/Resolved]

NARRATIVE: CASE EVENT DATE: 20230111
